FAERS Safety Report 5410934-7 (Version None)
Quarter: 2007Q3

REPORT INFORMATION
  Report Type: 
  Country: None (occurrence: None)
  Receive Date: 20070809
  Receipt Date: 20070809
  Transmission Date: 20080115
  Serious: Yes (Other)
  Sender: FDA-Public Use
  Company Number: None

PATIENT
  Age: 43 Year
  Sex: Female
  Weight: 44.9061 kg

DRUGS (4)
  1. TOPAMAX [Suspect]
     Indication: MIGRAINE PROPHYLAXIS
     Dosage: 75 MG DAILY PO
     Route: 048
     Dates: start: 20030307, end: 20040210
  2. TOPAMAX [Suspect]
     Indication: MIGRAINE PROPHYLAXIS
     Dosage: 75 MG DAILY PO
     Route: 048
     Dates: start: 20060613, end: 20070808
  3. RELPAX [Concomitant]
  4. ALBUTERAL [Concomitant]

REACTIONS (1)
  - OSTEOPOROSIS [None]
